FAERS Safety Report 5725997-9 (Version None)
Quarter: 2008Q2

REPORT INFORMATION
  Report Type: 
  Country: None (occurrence: None)
  Receive Date: 20080501
  Receipt Date: 20080501
  Transmission Date: 20081010
  Serious: No
  Sender: FDA-Public Use
  Company Number: None

PATIENT
  Age: 36 Year
  Sex: Female

DRUGS (5)
  1. CIPROFLOXACIN [Suspect]
     Dates: start: 20041228, end: 20050101
  2. PREDFORTE EYE DROPS [Concomitant]
  3. MULTI-VITAMIN [Concomitant]
  4. CALCIUM SUPPLEMENT [Concomitant]
  5. BIRTH CONTROL PILLS [Concomitant]

REACTIONS (9)
  - BRONCHITIS [None]
  - CHOLESTASIS [None]
  - EOSINOPHILIA [None]
  - EXCORIATION [None]
  - HEPATITIS [None]
  - IMPAIRED WORK ABILITY [None]
  - LIVER INJURY [None]
  - URTICARIA [None]
  - WEIGHT DECREASED [None]
